FAERS Safety Report 5723747-3 (Version None)
Quarter: 2008Q2

REPORT INFORMATION
  Report Type: 
  Country: None (occurrence: None)
  Receive Date: 20080430
  Receipt Date: 20080423
  Transmission Date: 20081010
  Serious: Yes (Other)
  Sender: FDA-Public Use
  Company Number: US-JNJFOC-20080406762

PATIENT
  Sex: Female

DRUGS (11)
  1. LEVAQUIN [Suspect]
     Indication: CELLULITIS
     Route: 048
  2. LEVAQUIN [Suspect]
     Indication: SINUSITIS
     Route: 048
  3. HUMIRA [Suspect]
     Indication: PSORIATIC ARTHROPATHY
     Route: 058
  4. HUMIRA [Suspect]
     Indication: PSORIASIS
     Route: 058
  5. SYNTHROID [Concomitant]
  6. DIOVAN [Concomitant]
  7. CRESTOR [Concomitant]
  8. VENLAFAXINE HYDROCHLORIDE [Concomitant]
  9. VETIA [Concomitant]
  10. SINGULAIR [Concomitant]
  11. ASMANEX TWISTHALER [Concomitant]

REACTIONS (9)
  - ERYTHEMA [None]
  - GAIT DISTURBANCE [None]
  - INJECTION SITE SWELLING [None]
  - LYME DISEASE [None]
  - PAIN IN EXTREMITY [None]
  - PHARYNGEAL ERYTHEMA [None]
  - PHARYNGEAL OEDEMA [None]
  - SWELLING FACE [None]
  - URTICARIA [None]
